FAERS Safety Report 5179137-8 (Version None)
Quarter: 2006Q4

REPORT INFORMATION
  Report Type: 
  Country: None (occurrence: None)
  Receive Date: 20061204
  Receipt Date: 20061121
  Transmission Date: 20070319
  Serious: Yes (Death, Other)
  Sender: FDA-Public Use
  Company Number: 200610861

PATIENT
  Age: 36 Year
  Sex: Female

DRUGS (5)
  1. CARIMUNE [Suspect]
     Indication: GALLBLADDER DISORDER
     Dosage: IV
     Route: 042
  2. CARIMUNE [Suspect]
     Indication: GALLBLADDER OPERATION
     Dosage: IV
     Route: 042
  3. CARIMUNE [Suspect]
     Indication: IDIOPATHIC THROMBOCYTOPENIC PURPURA
     Dosage: IV
     Route: 042
  4. CARIMUNE [Suspect]
     Indication: PLATELET COUNT DECREASED
     Dosage: IV
     Route: 042
  5. STEROIDS [Concomitant]

REACTIONS (14)
  - ABDOMINAL PAIN [None]
  - ADVERSE DRUG REACTION [None]
  - CARDIO-RESPIRATORY ARREST [None]
  - COLD SWEAT [None]
  - CONFUSIONAL STATE [None]
  - DIZZINESS [None]
  - GALLBLADDER DISORDER [None]
  - HYPERHIDROSIS [None]
  - HYPOTENSION [None]
  - PLATELET COUNT DECREASED [None]
  - RESPIRATORY DISTRESS [None]
  - TREATMENT NONCOMPLIANCE [None]
  - VENTRICULAR FIBRILLATION [None]
  - VOMITING [None]
